FAERS Safety Report 8398667-9 (Version None)
Quarter: 2012Q2

REPORT INFORMATION
  Report Type: 
  Country: None (occurrence: None)
  Receive Date: 20120531
  Receipt Date: 20120522
  Transmission Date: 20120825
  Serious: Yes (Other)
  Sender: FDA-Public Use
  Company Number: US-ASTRAZENECA-2012SE29609

PATIENT
  Age: 45 Year
  Sex: Female

DRUGS (1)
  1. NEXIUM [Suspect]
     Route: 048

REACTIONS (6)
  - ADVERSE EVENT [None]
  - GASTRIC DISORDER [None]
  - INTENTIONAL DRUG MISUSE [None]
  - HYPERTENSION [None]
  - CENTRAL NERVOUS SYSTEM LESION [None]
  - MENTAL IMPAIRMENT [None]
